FAERS Safety Report 9880604 (Version 1)
Quarter: 2014Q1

REPORT INFORMATION
  Report Type: Spontaneous
  Country: US (occurrence: None)
  Receive Date: 20140206
  Receipt Date: 20140206
  Transmission Date: 20141002
  Serious: No
  Sender: FDA-Public Use
  Company Number: None

PATIENT
  Age: 55 Year
  Sex: Male
  Weight: 132.9 kg

DRUGS (1)
  1. BUPRENORPHINE/NALOXONE [Suspect]
     Dosage: 2 Q DAY SL
     Route: 060
     Dates: start: 20140121, end: 20140205

REACTIONS (2)
  - Drug withdrawal syndrome [None]
  - Product substitution issue [None]
